FAERS Safety Report 23568547 (Version 5)
Quarter: 2024Q3

REPORT INFORMATION
  Report Type: Spontaneous
  Country: US (occurrence: US)
  Receive Date: 20240227
  Receipt Date: 20240729
  Transmission Date: 20241016
  Serious: Yes (Life-Threatening, Other)
  Sender: Haleon PLC
  Company Number: US-HALEON-USCH2024AMR010070

PATIENT
  Sex: Female
  Weight: 1.361 kg

DRUGS (5)
  1. ADVIL [Suspect]
     Active Substance: IBUPROFEN\IBUPROFEN SODIUM
     Indication: Product used for unknown indication
     Dosage: UNK
  2. LABETALOL [Suspect]
     Active Substance: LABETALOL\LABETALOL HYDROCHLORIDE
     Indication: Product used for unknown indication
  3. BOTOX [Suspect]
     Active Substance: ONABOTULINUMTOXINA
     Indication: Product used for unknown indication
     Dosage: UNK
  4. NURTEC ODT [Suspect]
     Active Substance: RIMEGEPANT SULFATE
     Indication: Product used for unknown indication
     Dosage: UNK
  5. TYLENOL [Suspect]
     Active Substance: ACETAMINOPHEN
     Indication: Product used for unknown indication
     Dosage: UNK

REACTIONS (2)
  - Long-chain acyl-coenzyme A dehydrogenase deficiency [Not Recovered/Not Resolved]
  - Premature baby [Unknown]

NARRATIVE: CASE EVENT DATE: 20240210
